FAERS Safety Report 4526265-3 (Version None)
Quarter: 2004Q4

REPORT INFORMATION
  Report Type: 
  Country: None (occurrence: None)
  Receive Date: 20041203
  Receipt Date: 20041119
  Transmission Date: 20050328
  Serious: Yes (Other)
  Sender: FDA-Public Use
  Company Number: WAES  0411PHL00027

PATIENT
  Sex: 0

DRUGS (1)
  1. INJ PRIMAXIN (IMIPENEM/CILASTATN SODIUM) [Suspect]
     Indication: ABDOMINAL INFECTION
     Dosage: 500 MG/QH6 IV
     Route: 042

REACTIONS (1)
  - INTESTINAL OBSTRUCTION [None]
